FAERS Safety Report 6075122-2 (Version None)
Quarter: 2009Q1

REPORT INFORMATION
  Report Type: 
  Country: None (occurrence: None)
  Receive Date: 20090212
  Receipt Date: 20090205
  Transmission Date: 20090719
  Serious: Yes (Hospitalization)
  Sender: FDA-Public Use
  Company Number: US-BIOGENIDEC-2008BI035089

PATIENT
  Age: 21 Year
  Sex: Female
  Weight: 77 kg

DRUGS (2)
  1. TYSABRI [Suspect]
     Indication: CROHN'S DISEASE
     Route: 042
     Dates: start: 20081006
  2. NEXIUM [Concomitant]

REACTIONS (1)
  - CHOLECYSTITIS [None]
